FAERS Safety Report 11058951 (Version 1)
Quarter: 2015Q2

REPORT INFORMATION
  Report Type: Spontaneous
  Country: US (occurrence: None)
  Receive Date: 20150422
  Receipt Date: 20150422
  Transmission Date: 20150821
  Serious: No
  Sender: FDA-Public Use
  Company Number: None

PATIENT
  Age: 40 Year
  Sex: Female
  Weight: 74.84 kg

DRUGS (4)
  1. MUSCLE AND JOINT PAIN RELIEF [Suspect]
     Active Substance: MENTHOL\METHYL SALICYLATE
     Indication: MUSCULOSKELETAL PAIN
     Route: 061
  2. NECK POSTURE PUMP/NECK TRAINER [Concomitant]
  3. WOMEN^S MULTI-VITAMIN [Concomitant]
  4. MUSCLE AND JOINT PAIN RELIEF [Suspect]
     Active Substance: MENTHOL\METHYL SALICYLATE
     Indication: NECK PAIN
     Route: 061

REACTIONS (2)
  - Application site burn [None]
  - Wound [None]

NARRATIVE: CASE EVENT DATE: 20150418
